FAERS Safety Report 8476221-8 (Version None)
Quarter: 2012Q2

REPORT INFORMATION
  Report Type: 
  Country: None (occurrence: None)
  Receive Date: 20120628
  Receipt Date: 20120620
  Transmission Date: 20120825
  Serious: Yes (Death, Hospitalization, Other)
  Sender: FDA-Public Use
  Company Number: US-ACTELION-A-US2012-60936

PATIENT

DRUGS (23)
  1. LEVOTHYROXINE [Concomitant]
  2. CALCIUM CHANNEL BLOCKERS [Concomitant]
  3. OXYBUTYNIN [Concomitant]
  4. PREDNISONE TAB [Concomitant]
  5. SPIRONOLACTONE [Concomitant]
  6. AMLODIPINE [Concomitant]
  7. LORTAB [Concomitant]
  8. MORPHINE [Concomitant]
  9. MULTI-VITAMIN [Concomitant]
  10. OMEPRAZOLE [Concomitant]
  11. MECLIZINE [Concomitant]
  12. MIRALAX [Concomitant]
  13. LORATADINE [Concomitant]
  14. VITAMIN B12 AND FOLIC ACID [Concomitant]
  15. IRON SUCROSE [Concomitant]
  16. VITAMIN B6 [Concomitant]
  17. EPOPROSTENOL SODIUM [Suspect]
     Indication: PULMONARY ARTERIAL HYPERTENSION
     Dosage: 29 NG/KG, PER MIN
     Route: 042
     Dates: start: 20110401, end: 20120209
  18. TRACLEER [Suspect]
     Indication: PULMONARY ARTERIAL HYPERTENSION
     Dosage: UNK
     Route: 048
     Dates: start: 20080425, end: 20120209
  19. HYDROXYCHLOROQUINE SULFATE [Concomitant]
  20. ACYCLOVIR [Concomitant]
  21. ONDANSETRON (ZOFRAN) [Concomitant]
  22. POTASSIUM CHLORIDE [Concomitant]
  23. FUROSEMIDE [Concomitant]

REACTIONS (19)
  - ABDOMINAL PAIN UPPER [None]
  - SWELLING [None]
  - RENAL FAILURE ACUTE [None]
  - DISEASE PROGRESSION [None]
  - DIARRHOEA [None]
  - FLUID OVERLOAD [None]
  - ERYTHEMA [None]
  - PULMONARY ARTERIAL HYPERTENSION [None]
  - CONDITION AGGRAVATED [None]
  - CELLULITIS [None]
  - SCLERODERMA [None]
  - RENAL IMPAIRMENT [None]
  - TENDERNESS [None]
  - CYSTITIS [None]
  - ANKLE FRACTURE [None]
  - CARDIAC FAILURE [None]
  - NAUSEA [None]
  - VOMITING [None]
  - PROTEUS INFECTION [None]
